FAERS Safety Report 8804469 (Version 1)
Quarter: 2012Q4

REPORT INFORMATION
  Report Type: 
  Country: CN (occurrence: CN)
  Receive Date: 20120923
  Receipt Date: 20120923
  Transmission Date: 20130627
  Serious: Yes (Other)
  Sender: FDA-Public Use
  Company Number: CN-BAYER-2012-097814

PATIENT
  Age: 53 Year
  Sex: Male
  Weight: 80 kg

DRUGS (9)
  1. ACETYLSALICYLIC ACID({=100 MG) [Suspect]
     Indication: PLATELET DISORDER
     Dosage: 0.1 g, QD
     Route: 048
     Dates: start: 20000101, end: 20110531
  2. ANTIHYPERTENSIVES [Concomitant]
     Indication: CORONARY ARTERY DISEASE
  3. ANTIHYPERTENSIVES [Concomitant]
     Indication: ANGINA PECTORIS
  4. ANTIHYPERTENSIVES [Concomitant]
     Indication: HYPERTENSION
  5. ANTIHYPERTENSIVES [Concomitant]
     Indication: CORONARY ARTERIAL STENT INSERTION
  6. ANTITHROMBOTIC AGENTS [Concomitant]
     Indication: CORONARY ARTERY DISEASE
  7. ANTITHROMBOTIC AGENTS [Concomitant]
     Indication: ANGINA PECTORIS
  8. ANTITHROMBOTIC AGENTS [Concomitant]
     Indication: HYPERTENSION
  9. ANTITHROMBOTIC AGENTS [Concomitant]
     Indication: CORONARY ARTERIAL STENT INSERTION

REACTIONS (1)
  - Hepatitis [Recovering/Resolving]
